FAERS Safety Report 8783132 (Version 4)
Quarter: 2014Q1

REPORT INFORMATION
  Report Type: Report from Study
  Country: JP (occurrence: JP)
  Receive Date: 20120913
  Receipt Date: 20140130
  Transmission Date: 20141002
  Serious: Yes (Hospitalization)
  Sender: FDA-Public Use
  Company Number: JP-VERTEX PHARMACEUTICAL INC.-2012-020779

PATIENT
  Age: 64 Year
  Sex: Female

DRUGS (6)
  1. VX-950 (TELAPREVIR) [Suspect]
     Indication: CHRONIC HEPATITIS C
     Dosage: 1500 MG, QD
     Route: 048
     Dates: start: 20120705, end: 20120726
  2. PEGINTERFERON ALFA-2B [Suspect]
     Indication: CHRONIC HEPATITIS C
     Dosage: 1.5 ?G/KG, QW
     Route: 058
     Dates: start: 20120705, end: 20120723
  3. RIBAVIRIN [Concomitant]
     Dosage: 800 MG, QD
     Route: 048
     Dates: start: 20120705, end: 20120726
  4. ACINON [Concomitant]
     Dosage: 300 MG, QD
     Route: 048
     Dates: start: 20120705, end: 20120726
  5. TALION [Concomitant]
     Dosage: 20 MG, QD
     Route: 048
     Dates: start: 20120705, end: 20120726
  6. PREDONINE [Concomitant]
     Dosage: 15 MG, QD
     Route: 048
     Dates: start: 20120705, end: 20120726

REACTIONS (1)
  - Psychiatric symptom [Recovered/Resolved]
